FAERS Safety Report 4327691-8 (Version None)
Quarter: 2004Q1

REPORT INFORMATION
  Report Type: 
  Country: None (occurrence: None)
  Receive Date: 20040331
  Receipt Date: 20031203
  Transmission Date: 20041129
  Serious: No
  Sender: FDA-Public Use
  Company Number: US-GLAXOSMITHKLINE-A0442578A

PATIENT
  Sex: Female

DRUGS (2)
  1. COMPAZINE [Suspect]
     Indication: VOMITING
     Route: 065
  2. ZOFRAN [Concomitant]

REACTIONS (2)
  - ADVERSE EVENT [None]
  - DRUG INEFFECTIVE [None]
